FAERS Safety Report 6121477-X (Version None)
Quarter: 2009Q1

REPORT INFORMATION
  Report Type: 
  Country: None (occurrence: None)
  Receive Date: 20090313
  Receipt Date: 20090313
  Transmission Date: 20090719
  Serious: Yes (Hospitalization)
  Sender: FDA-Public Use
  Company Number: None

PATIENT
  Sex: Female
  Weight: 59.69 kg

DRUGS (2)
  1. CARBOPLATIN [Suspect]
     Dosage: 710 MG
     Dates: start: 20090304, end: 20090304
  2. TAXOL [Suspect]
     Dosage: 294 MG
     Dates: end: 20090304

REACTIONS (5)
  - ABDOMINAL PAIN [None]
  - DYSPNOEA [None]
  - NAUSEA [None]
  - PLEURAL EFFUSION [None]
  - VOMITING [None]
